FAERS Safety Report 13969170 (Version 1)
Quarter: 2017Q3

REPORT INFORMATION
  Report Type: Spontaneous
  Country: US (occurrence: US)
  Receive Date: 20170914
  Receipt Date: 20170914
  Transmission Date: 20171128
  Serious: No
  Sender: FDA-Public Use
  Company Number: US-ASTRAZENECA-2017SE92785

PATIENT
  Sex: Male
  Weight: 83.9 kg

DRUGS (7)
  1. INSULIN NOVOLOG [Concomitant]
     Indication: DIABETES MELLITUS
     Route: 058
  2. CYCLOBENZAPRINE HYDROCHLORIDE. [Interacting]
     Active Substance: CYCLOBENZAPRINE HYDROCHLORIDE
     Indication: MUSCLE RELAXANT THERAPY
     Dosage: 10.0MG UNKNOWN
     Route: 065
  3. OXYCONTIN [Concomitant]
     Active Substance: OXYCODONE HYDROCHLORIDE
     Route: 065
     Dates: start: 2016
  4. POLYETHLENE GLYCOL [Concomitant]
     Indication: CONSTIPATION
     Route: 065
  5. LANTUS [Concomitant]
     Active Substance: INSULIN GLARGINE
     Indication: DIABETES MELLITUS
     Route: 058
  6. MOVANTIK [Suspect]
     Active Substance: NALOXEGOL OXALATE
     Indication: CONSTIPATION
     Route: 048
     Dates: start: 201611
  7. MIRALAX [Concomitant]
     Active Substance: POLYETHYLENE GLYCOL 3350
     Indication: CONSTIPATION
     Route: 065

REACTIONS (2)
  - Inhibitory drug interaction [Unknown]
  - Phantom pain [Unknown]
